FAERS Safety Report 26102469 (Version 2)
Quarter: 2025Q4

REPORT INFORMATION
  Report Type: Report from Study
  Country: JP (occurrence: JP)
  Receive Date: 20251128
  Receipt Date: 20251229
  Transmission Date: 20260118
  Serious: Yes (Other)
  Sender: ABBVIE
  Company Number: JP-ABBVIE-5634351

PATIENT
  Age: 44 Year
  Sex: Male

DRUGS (2)
  1. VYALEV [Suspect]
     Active Substance: FOSCARBIDOPA\FOSLEVODOPA
     Indication: Parkinson^s disease
     Route: 058
     Dates: start: 20240117
  2. STALEVO [Suspect]
     Active Substance: CARBIDOPA\ENTACAPONE\LEVODOPA
     Indication: Parkinson^s disease
     Route: 048

REACTIONS (16)
  - Appendicitis [Unknown]
  - Infusion site bruising [Unknown]
  - Therapeutic product effect incomplete [Unknown]
  - Loss of consciousness [Recovered/Resolved]
  - Infusion site haemorrhage [Recovered/Resolved]
  - Dyspnoea [Recovered/Resolved]
  - Infusion site mass [Unknown]
  - Mobility decreased [Recovered/Resolved]
  - Infusion site pain [Unknown]
  - Pyrexia [Not Recovered/Not Resolved]
  - Coronavirus infection [Unknown]
  - Infusion site erythema [Unknown]
  - Infusion site pain [Not Recovered/Not Resolved]
  - Infusion site swelling [Unknown]
  - Infusion site discharge [Unknown]
  - Infusion site reaction [Unknown]

NARRATIVE: CASE EVENT DATE: 20240206
